FAERS Safety Report 13028853 (Version 1)
Quarter: 2016Q4

REPORT INFORMATION
  Report Type: Spontaneous
  Country: TH (occurrence: TH)
  Receive Date: 20161214
  Receipt Date: 20161214
  Transmission Date: 20170207
  Serious: Yes (Other)
  Sender: FDA-Public Use
  Company Number: TH-SA-2016SA222254

PATIENT

DRUGS (3)
  1. PRIMAQUINE PHOSPHATE. [Suspect]
     Active Substance: PRIMAQUINE PHOSPHATE
     Indication: PLASMODIUM FALCIPARUM INFECTION
     Route: 065
  2. ARTESUNATE [Suspect]
     Active Substance: ARTESUNATE
     Indication: PLASMODIUM FALCIPARUM INFECTION
     Route: 065
  3. ATOVAQUONE/PROGUANIL HYDROCHLORIDE [Suspect]
     Active Substance: ATOVAQUONE\PROGUANIL HYDROCHLORIDE
     Indication: PLASMODIUM FALCIPARUM INFECTION
     Route: 065

REACTIONS (1)
  - Drug-induced liver injury [Unknown]
